FAERS Safety Report 8454689-0 (Version None)
Quarter: 2012Q2

REPORT INFORMATION
  Report Type: 
  Country: None (occurrence: None)
  Receive Date: 20120615
  Receipt Date: 20120615
  Transmission Date: 20120825
  Serious: No
  Sender: FDA-Public Use
  Company Number: None

PATIENT
  Age: 36 Year
  Sex: Female
  Weight: 74.8435 kg

DRUGS (1)
  1. MORPHINE SULFATE [Suspect]
     Indication: ARTHRALGIA
     Dosage: 2MG IV X 1
     Route: 042
     Dates: start: 20120610

REACTIONS (3)
  - THROAT TIGHTNESS [None]
  - INJECTION SITE ERYTHEMA [None]
  - PHARYNGEAL OEDEMA [None]
